FAERS Safety Report 6488833-1 (Version None)
Quarter: 2009Q4

REPORT INFORMATION
  Report Type: 
  Country: None (occurrence: None)
  Receive Date: 20091210
  Receipt Date: 20091125
  Transmission Date: 20100525
  Serious: Yes (Other)
  Sender: FDA-Public Use
  Company Number: TW-ROCHE-672172

PATIENT
  Age: 67 Year
  Sex: Female

DRUGS (5)
  1. TRASTUZUMAB [Suspect]
     Indication: DRUG USE FOR UNKNOWN INDICATION
     Dosage: 4 MG/KG, UNK
     Route: 042
     Dates: start: 20090917, end: 20091015
  2. DOCETAXEL [Suspect]
     Indication: BREAST CANCER
     Dosage: 75 MG/M2, 3/WEEK
     Route: 042
     Dates: start: 20090917, end: 20091007
  3. DOCETAXEL [Suspect]
     Dosage: 75 MG/M2, 3/WEEK
     Route: 042
     Dates: start: 20090917, end: 20091007
  4. MIRTAZAPINE [Concomitant]
     Indication: DRUG USE FOR UNKNOWN INDICATION
     Dosage: UNK
  5. ZOLPIDEM TARTRATE [Concomitant]
     Indication: DRUG USE FOR UNKNOWN INDICATION
     Dosage: UNK

REACTIONS (1)
  - ALANINE AMINOTRANSFERASE INCREASED [None]
